FAERS Safety Report 10443886 (Version 1)
Quarter: 2014Q3

REPORT INFORMATION
  Report Type: Spontaneous
  Country: US (occurrence: None)
  Receive Date: 20140909
  Receipt Date: 20140909
  Transmission Date: 20150326
  Serious: Yes (Life-Threatening)
  Sender: FDA-Public Use
  Company Number: None

PATIENT
  Age: 89 Year
  Sex: Male

DRUGS (1)
  1. METOPROLOL TARTRATE. [Suspect]
     Active Substance: METOPROLOL TARTRATE
     Dosage: 1 TAB BID ORAL
     Route: 048

REACTIONS (3)
  - Drug ineffective [None]
  - Tachycardia [None]
  - Product quality issue [None]

NARRATIVE: CASE EVENT DATE: 20140907
